FAERS Safety Report 7013629-1 (Version None)
Quarter: 2010Q3

REPORT INFORMATION
  Report Type: 
  Country: None (occurrence: None)
  Receive Date: 20100924
  Receipt Date: 20080407
  Transmission Date: 20110219
  Serious: Yes (Death)
  Sender: FDA-Public Use
  Company Number: PHHY2008US36995

PATIENT
  Sex: Female

DRUGS (2)
  1. EXJADE [Suspect]
     Dosage: 250 MG
     Route: 048
  2. EXJADE [Suspect]
     Dosage: 500 MG
     Route: 048

REACTIONS (2)
  - RENAL FAILURE [None]
  - SEPSIS [None]
